FAERS Safety Report 4996535-3 (Version None)
Quarter: 2006Q2

REPORT INFORMATION
  Report Type: 
  Country: None (occurrence: None)
  Receive Date: 20060505
  Receipt Date: 20060420
  Transmission Date: 20061013
  Serious: Yes (Other)
  Sender: FDA-Public Use
  Company Number: 2006US-02099

PATIENT
  Age: 32 Year
  Sex: Female

DRUGS (2)
  1. ISOTRETINOIN [Suspect]
     Dosage: SEE IMAGE
     Dates: start: 20051207, end: 20060201
  2. ISOTRETINOIN [Suspect]
     Dosage: SEE IMAGE
     Dates: start: 20060414, end: 20060421

REACTIONS (3)
  - C-REACTIVE PROTEIN INCREASED [None]
  - JOINT SWELLING [None]
  - RED BLOOD CELL SEDIMENTATION RATE INCREASED [None]
